FAERS Safety Report 15992717 (Version 1)
Quarter: 2019Q1

REPORT INFORMATION
  Report Type: Spontaneous
  Country: US (occurrence: US)
  Receive Date: 20190221
  Receipt Date: 20190221
  Transmission Date: 20190418
  Serious: Yes (Other)
  Sender: FDA-Public Use
  Company Number: US-PFIZER INC-2019066255

PATIENT
  Age: 77 Year
  Sex: Male
  Weight: 88 kg

DRUGS (2)
  1. LIPITOR [Suspect]
     Active Substance: ATORVASTATIN CALCIUM
     Dosage: 80 MG, UNK (CRUSHED AND PUT IN FEEDING TUBE)
     Dates: start: 201704
  2. LIPITOR [Suspect]
     Active Substance: ATORVASTATIN CALCIUM
     Indication: BLOOD CHOLESTEROL
     Dosage: UNK

REACTIONS (3)
  - Myocardial infarction [Unknown]
  - Product size issue [Unknown]
  - Dysphagia [Unknown]

NARRATIVE: CASE EVENT DATE: 2012
